FAERS Safety Report 19051655 (Version 1)
Quarter: 2021Q1

REPORT INFORMATION
  Report Type: Spontaneous
  Country: AR (occurrence: AR)
  Receive Date: 20210324
  Receipt Date: 20210324
  Transmission Date: 20210420
  Serious: Yes (Other)
  Sender: FDA-Public Use
  Company Number: AR-ALLERGAN-2111900US

PATIENT
  Sex: Female

DRUGS (2)
  1. COVID?19 VACCINE NOS. [Interacting]
     Active Substance: COVID-19 VACCINE NOS
     Indication: PRODUCT USED FOR UNKNOWN INDICATION
     Dosage: UNK UNK, SINGLE
     Dates: start: 20210311, end: 20210311
  2. BOTOX [Suspect]
     Active Substance: ONABOTULINUMTOXINA
     Indication: BLEPHAROSPASM
     Dosage: UNK UNK, SINGLE
     Dates: start: 20210303, end: 20210303

REACTIONS (4)
  - Eyelid ptosis [Unknown]
  - Diplopia [Unknown]
  - Drug interaction [Unknown]
  - Cranial nerve paralysis [Unknown]

NARRATIVE: CASE EVENT DATE: 202103
